FAERS Safety Report 8849240 (Version 1)
Quarter: 2012Q4

REPORT INFORMATION
  Report Type: Spontaneous
  Country: US (occurrence: None)
  Receive Date: 20121018
  Receipt Date: 20121018
  Transmission Date: 20130627
  Serious: Yes (Other)
  Sender: FDA-Public Use
  Company Number: None

PATIENT
  Age: 63 Year
  Sex: Female
  Weight: 58.97 kg

DRUGS (2)
  1. RESTASIS [Suspect]
     Indication: DRY EYE
     Route: 031
     Dates: start: 20110901, end: 20111014
  2. RESTASIS [Suspect]
     Indication: DRY EYE
     Dates: start: 20111021, end: 20111028

REACTIONS (2)
  - Urticaria [None]
  - Hypersensitivity [None]
